FAERS Safety Report 14594521 (Version 2)
Quarter: 2018Q1

REPORT INFORMATION
  Report Type: Spontaneous
  Country: IT (occurrence: IT)
  Receive Date: 20180302
  Receipt Date: 20180327
  Transmission Date: 20180509
  Serious: Yes (Life-Threatening)
  Sender: FDA-Public Use
  Company Number: IT-TEVA-2018-IT-860821

PATIENT
  Age: 82 Year
  Sex: Female

DRUGS (8)
  1. COUMADIN [Concomitant]
     Active Substance: WARFARIN SODIUM
  2. IDEOS [Concomitant]
     Active Substance: CALCIUM CARBONATE\CHOLECALCIFEROL
  3. UNIPRIL [Concomitant]
     Active Substance: RAMIPRIL
  4. BISOPROLOLO TEVA 1,25 MG COMPRESSE [Suspect]
     Active Substance: BISOPROLOL
     Indication: HYPERTENSION
     Route: 048
  5. RYTMONORM [Suspect]
     Active Substance: PROPAFENONE
     Indication: ATRIAL FIBRILLATION
     Route: 048
  6. OMEPRAZOLO DOC GENERICI 20 MG CAPSULE RIGIDE GASTRORESISTENTI [Concomitant]
  7. LERCADIP 10 MG COMPRESSE RIVESTITE CON FILM [Suspect]
     Active Substance: LERCANIDIPINE HYDROCHLORIDE
     Indication: HYPERTENSION
     Route: 048
  8. EUTIROX 25 MICROGRAMMI COMPRESSE [Concomitant]

REACTIONS (3)
  - Sinus bradycardia [Recovering/Resolving]
  - Suicide attempt [Recovering/Resolving]
  - Intentional overdose [Recovering/Resolving]

NARRATIVE: CASE EVENT DATE: 20171217
